FAERS Safety Report 19543031 (Version 3)
Quarter: 2023Q4

REPORT INFORMATION
  Report Type: Spontaneous
  Country: US (occurrence: US)
  Receive Date: 20210713
  Receipt Date: 20231020
  Transmission Date: 20240109
  Serious: No
  Sender: FDA-Public Use
  Company Number: US-GILEAD-2021-0539467

PATIENT
  Age: 40 Year
  Sex: Male
  Weight: 74.83 kg

DRUGS (67)
  1. VIREAD [Suspect]
     Active Substance: TENOFOVIR DISOPROXIL FUMARATE
     Indication: HIV infection
     Dosage: UNK
     Route: 048
     Dates: start: 2001, end: 2003
  2. TRUVADA [Suspect]
     Active Substance: EMTRICITABINE\TENOFOVIR DISOPROXIL FUMARATE
     Indication: HIV infection
     Dosage: UNK
     Route: 048
     Dates: start: 2001
  3. TRUVADA [Suspect]
     Active Substance: EMTRICITABINE\TENOFOVIR DISOPROXIL FUMARATE
     Dosage: UNK
     Route: 065
     Dates: start: 20140825, end: 20140925
  4. ATRIPLA [Suspect]
     Active Substance: EFAVIRENZ\EMTRICITABINE\TENOFOVIR DISOPROXIL FUMARATE
     Indication: HIV infection
     Dosage: UNK
     Route: 048
     Dates: start: 2001
  5. ATRIPLA [Suspect]
     Active Substance: EFAVIRENZ\EMTRICITABINE\TENOFOVIR DISOPROXIL FUMARATE
     Dosage: UNK
     Route: 065
     Dates: start: 2006, end: 2016
  6. DESCOVY [Concomitant]
     Active Substance: EMTRICITABINE\TENOFOVIR ALAFENAMIDE FUMARATE
  7. INTELENCE [Concomitant]
     Active Substance: ETRAVIRINE
  8. NORVIR [Concomitant]
     Active Substance: RITONAVIR
  9. PREZISTA [Concomitant]
     Active Substance: DARUNAVIR ETHANOLATE
  10. ACYCLOVIR [Concomitant]
     Active Substance: ACYCLOVIR
  11. AFLURIA NOS [Concomitant]
     Active Substance: INFLUENZA VIRUS VACCINE TRIVALENT TYPE A+B AFLURIA
  12. AMOXICILLIN [Concomitant]
     Active Substance: AMOXICILLIN
  13. ANDROGEL [Concomitant]
     Active Substance: TESTOSTERONE
  14. ATORVASTATIN [Concomitant]
     Active Substance: ATORVASTATIN
  15. AZITHROMYCIN [Concomitant]
     Active Substance: AZITHROMYCIN
  16. BANOPHEN [Concomitant]
     Active Substance: DIPHENHYDRAMINE HYDROCHLORIDE
  17. INSULIN NOS [Concomitant]
     Active Substance: INSULIN NOS
  18. BENZONATATE [Concomitant]
     Active Substance: BENZONATATE
  19. BISACODYL [Concomitant]
     Active Substance: BISACODYL
  20. CAVERJECT [Concomitant]
     Active Substance: ALPROSTADIL
  21. CELECOXIB [Concomitant]
     Active Substance: CELECOXIB
  22. CEPHALEXIN [Concomitant]
     Active Substance: CEPHALEXIN
  23. CHANTIX [Concomitant]
     Active Substance: VARENICLINE TARTRATE
  24. CHLORHEXIDINE [Concomitant]
     Active Substance: CHLORHEXIDINE\CHLORHEXIDINE GLUCONATE
  25. CIPROFLOXACIN [Concomitant]
     Active Substance: CIPROFLOXACIN
  26. CLINDAMYCIN [Concomitant]
     Active Substance: CLINDAMYCIN
  27. CYANOCOBALAMIN [Concomitant]
     Active Substance: CYANOCOBALAMIN
  28. CYCLOBENZAPRINE [Concomitant]
     Active Substance: CYCLOBENZAPRINE
  29. DESLORATADINE [Concomitant]
     Active Substance: DESLORATADINE
  30. DIAZEPAM [Concomitant]
     Active Substance: DIAZEPAM
  31. DOXEPIN [Concomitant]
     Active Substance: DOXEPIN
  32. DOXYCYCLINE [Concomitant]
     Active Substance: DOXYCYCLINE
  33. DRONABINOL [Concomitant]
     Active Substance: DRONABINOL
  34. DULOXETINE [Concomitant]
     Active Substance: DULOXETINE
  35. EDEX [Concomitant]
     Active Substance: ALPROSTADIL
  36. ERYTHROMYCIN [Concomitant]
     Active Substance: ERYTHROMYCIN
  37. FENOFIBRATE [Concomitant]
     Active Substance: FENOFIBRATE
  38. FINASTERIDE [Concomitant]
     Active Substance: FINASTERIDE
  39. FLUTICASONE [Concomitant]
     Active Substance: FLUTICASONE
  40. HYDROCODONE [Concomitant]
     Active Substance: HYDROCODONE
  41. IBUPROFEN [Concomitant]
     Active Substance: IBUPROFEN
  42. KETOROLAC [Concomitant]
     Active Substance: KETOROLAC TROMETHAMINE
  43. KLOR-CON [Concomitant]
     Active Substance: POTASSIUM CHLORIDE
  44. LOPERAMIDE [Concomitant]
     Active Substance: LOPERAMIDE
  45. METHYLPREDNISOLONE [Concomitant]
     Active Substance: METHYLPREDNISOLONE
  46. METRONIDAZOLE [Concomitant]
     Active Substance: METRONIDAZOLE
  47. MOMETASONE [Concomitant]
     Active Substance: MOMETASONE
  48. MUPIROCIN [Concomitant]
     Active Substance: MUPIROCIN
  49. NALTREXONE [Concomitant]
     Active Substance: NALTREXONE
  50. NASONEX [Concomitant]
     Active Substance: MOMETASONE FUROATE
  51. OFLOXACIN [Concomitant]
     Active Substance: OFLOXACIN
  52. OLOPATADINE [Concomitant]
     Active Substance: OLOPATADINE
  53. OSELTAMIVIR [Concomitant]
     Active Substance: OSELTAMIVIR
  54. OXYCODONE [Concomitant]
     Active Substance: OXYCODONE
  55. POLYETHYLENE GLYCOL 3350 [Concomitant]
     Active Substance: POLYETHYLENE GLYCOL 3350
  56. PERMETHRIN [Concomitant]
     Active Substance: PERMETHRIN
  57. PREDNISONE [Concomitant]
     Active Substance: PREDNISONE
  58. RITONAVIR [Concomitant]
     Active Substance: RITONAVIR
  59. SHINGRIX [Concomitant]
     Active Substance: RECOMBINANT VARICELLA ZOSTER VIRUS (VZV) GLYCOPROTEIN E
  60. SULFAMETHOXAZOLE [Concomitant]
     Active Substance: SULFAMETHOXAZOLE
  61. TESTOSTERONE [Concomitant]
     Active Substance: TESTOSTERONE
  62. TRAZODONE [Concomitant]
     Active Substance: TRAZODONE HYDROCHLORIDE
  63. VASCEPA [Concomitant]
     Active Substance: ICOSAPENT ETHYL
  64. VENTOLIN [Concomitant]
     Active Substance: ALBUTEROL SULFATE
  65. ZALEPLON [Concomitant]
     Active Substance: ZALEPLON
  66. INTERFERON [Concomitant]
     Active Substance: INTERFERON
  67. RIBAVIRIN [Concomitant]
     Active Substance: RIBAVIRIN

REACTIONS (11)
  - Radius fracture [Not Recovered/Not Resolved]
  - Bone density decreased [Unknown]
  - Osteopenia [Not Recovered/Not Resolved]
  - Pain [Not Recovered/Not Resolved]
  - Emotional distress [Not Recovered/Not Resolved]
  - Anxiety [Not Recovered/Not Resolved]
  - Anhedonia [Unknown]
  - Mass [Not Recovered/Not Resolved]
  - Fall [Recovered/Resolved]
  - Joint range of motion decreased [Not Recovered/Not Resolved]
  - Grip strength decreased [Not Recovered/Not Resolved]

NARRATIVE: CASE EVENT DATE: 20060306
